FAERS Safety Report 25609660 (Version 1)
Quarter: 2025Q3

REPORT INFORMATION
  Report Type: Spontaneous
  Country: BR (occurrence: BR)
  Receive Date: 20250728
  Receipt Date: 20250728
  Transmission Date: 20251021
  Serious: Yes (Other)
  Sender: ALEXION PHARMACEUTICALS
  Company Number: BR-AstraZeneca-CH-00915648A

PATIENT
  Age: 86 Year
  Sex: Male

DRUGS (1)
  1. LYNPARZA [Suspect]
     Active Substance: OLAPARIB
     Indication: Pancreatic carcinoma
     Dosage: 150 MILLIGRAM, Q12H
     Route: 065
     Dates: start: 20250425, end: 20250715

REACTIONS (6)
  - Malignant neoplasm progression [Unknown]
  - Anaemia [Unknown]
  - Vomiting [Unknown]
  - Faeces discoloured [Unknown]
  - Gastrointestinal haemorrhage [Unknown]
  - Haemoglobin [Unknown]

NARRATIVE: CASE EVENT DATE: 20250401
